FAERS Safety Report 26069242 (Version 1)
Quarter: 2025Q4

REPORT INFORMATION
  Report Type: Spontaneous
  Country: US (occurrence: US)
  Receive Date: 20251120
  Receipt Date: 20251120
  Transmission Date: 20260118
  Serious: No
  Sender: AMNEAL
  Company Number: US-AMNEAL PHARMACEUTICALS-2025-AMRX-03937

PATIENT
  Sex: Female

DRUGS (7)
  1. CREXONT [Suspect]
     Active Substance: CARBIDOPA\LEVODOPA
     Indication: Parkinson^s disease
     Dosage: (52.5/210 MG) 1 CAPSULES, 4 /DAY
     Route: 048
     Dates: start: 2025
  2. CREXONT [Suspect]
     Active Substance: CARBIDOPA\LEVODOPA
     Dosage: (52.5/210 MG) 2 CAPSULES, 4 /DAY
     Route: 048
  3. CREXONT [Suspect]
     Active Substance: CARBIDOPA\LEVODOPA
     Dosage: (52.5/210 MG) 1 CAPSULES, 4 /DAY
     Route: 048
     Dates: end: 20251014
  4. ONGENTYS [Concomitant]
     Active Substance: OPICAPONE
     Indication: Product used for unknown indication
     Dosage: 1 CAPSULES
     Route: 065
  5. AMANTADINE [Concomitant]
     Active Substance: AMANTADINE
     Indication: Product used for unknown indication
     Dosage: UNK
     Route: 065
  6. LORAZEPAM [Concomitant]
     Active Substance: LORAZEPAM
     Indication: Product used for unknown indication
     Dosage: UNK
     Route: 065
  7. TERBUTALINE [Concomitant]
     Active Substance: TERBUTALINE
     Indication: Product used for unknown indication
     Dosage: UNK
     Route: 065

REACTIONS (3)
  - Tremor [Not Recovered/Not Resolved]
  - Hot flush [Not Recovered/Not Resolved]
  - Drug intolerance [Unknown]
